FAERS Safety Report 25760238 (Version 1)
Quarter: 2025Q3

REPORT INFORMATION
  Report Type: Other
  Country: EU (occurrence: EU)
  Receive Date: 20250904
  Receipt Date: 20250904
  Transmission Date: 20251021
  Serious: Yes (Hospitalization, Other)
  Sender: INNOGENIX, LLC
  Company Number: EU-Innogenix, LLC-2183804

PATIENT
  Age: 9 Decade
  Sex: Female

DRUGS (8)
  1. METRONIDAZOLE [Suspect]
     Active Substance: METRONIDAZOLE
     Indication: Submandibular abscess
  2. HYDROXYCHLOROQUINE SULFATE [Suspect]
     Active Substance: HYDROXYCHLOROQUINE SULFATE
  3. HYDROCHLOROTHIAZIDE [Concomitant]
     Active Substance: HYDROCHLOROTHIAZIDE
  4. ENALAPRILAT [Concomitant]
     Active Substance: ENALAPRILAT
  5. AMOXICILLIN [Concomitant]
     Active Substance: AMOXICILLIN
  6. PREDNISONE [Concomitant]
     Active Substance: PREDNISONE
  7. SIMVASTATIN [Concomitant]
     Active Substance: SIMVASTATIN
  8. LEFLUNOMIDE [Suspect]
     Active Substance: LEFLUNOMIDE

REACTIONS (3)
  - Neurotoxicity [Recovering/Resolving]
  - Product use in unapproved indication [Unknown]
  - Polyneuropathy [Not Recovered/Not Resolved]
